FAERS Safety Report 8615193-X (Version None)
Quarter: 2012Q3

REPORT INFORMATION
  Report Type: 
  Country: None (occurrence: None)
  Receive Date: 20120823
  Receipt Date: 20120821
  Transmission Date: 20120928
  Serious: Yes (Other)
  Sender: FDA-Public Use
  Company Number: US-BAYER-2012-063993

PATIENT
  Age: 47 Year
  Sex: Female
  Weight: 60.771 kg

DRUGS (3)
  1. ASPIRIN [Suspect]
     Indication: HEADACHE
     Dosage: 2 DF, UNK
     Route: 048
     Dates: start: 20120624
  2. ANTIHYPERTENSIVES [Concomitant]
  3. HYDROCHLOROTHIAZIDE [Concomitant]

REACTIONS (6)
  - FOREIGN BODY [None]
  - OROPHARYNGEAL PAIN [None]
  - DYSPHAGIA [None]
  - OESOPHAGEAL PAIN [None]
  - SNEEZING [None]
  - THROAT IRRITATION [None]
